FAERS Safety Report 10971807 (Version 1)
Quarter: 2015Q1

REPORT INFORMATION
  Report Type: Spontaneous
  Country: US (occurrence: None)
  Receive Date: 20150330
  Receipt Date: 20150330
  Transmission Date: 20150721
  Serious: Yes (Other)
  Sender: FDA-Public Use
  Company Number: None

PATIENT
  Age: 69 Year
  Sex: Female
  Weight: 66.68 kg

DRUGS (2)
  1. ANASTROZOLE. [Suspect]
     Active Substance: ANASTROZOLE
     Indication: BREAST CANCER
     Dosage: MOUTH
     Dates: start: 20140401, end: 20150116
  2. CALCIUM [Concomitant]
     Active Substance: CALCIUM

REACTIONS (5)
  - Contusion [None]
  - Thermal burn [None]
  - Sleep terror [None]
  - Screaming [None]
  - Neck injury [None]

NARRATIVE: CASE EVENT DATE: 20140721
